FAERS Safety Report 6045153-7 (Version None)
Quarter: 2009Q1

REPORT INFORMATION
  Report Type: 
  Country: None (occurrence: None)
  Receive Date: 20090116
  Receipt Date: 20090116
  Transmission Date: 20090719
  Serious: Yes (Hospitalization)
  Sender: FDA-Public Use
  Company Number: None

PATIENT
  Sex: Female
  Weight: 56.6996 kg

DRUGS (1)
  1. ACTOS [Suspect]
     Indication: DIABETES MELLITUS
     Dosage: 1 DAILY PO
     Route: 048
     Dates: start: 20061201, end: 20090101

REACTIONS (1)
  - BLADDER CANCER [None]
